FAERS Safety Report 10402469 (Version 1)
Quarter: 2014Q3

REPORT INFORMATION
  Report Type: Spontaneous
  Country: US (occurrence: None)
  Receive Date: 20140821
  Receipt Date: 20140821
  Transmission Date: 20150326
  Serious: Yes (Life-Threatening, Hospitalization)
  Sender: FDA-Public Use
  Company Number: None

PATIENT
  Age: 17 Year
  Sex: Male
  Weight: 90.72 kg

DRUGS (1)
  1. FLUOXETINE HCL [Suspect]
     Active Substance: FLUOXETINE HYDROCHLORIDE
     Indication: MAJOR DEPRESSION
     Dosage: 1 AT BEDTIME

REACTIONS (9)
  - Depression [None]
  - Feeling abnormal [None]
  - Verbal abuse [None]
  - Aggression [None]
  - Agitation [None]
  - Suicidal ideation [None]
  - Overdose [None]
  - Disorientation [None]
  - Suicide attempt [None]

NARRATIVE: CASE EVENT DATE: 20020804
